FAERS Safety Report 9636374 (Version 1)
Quarter: 2013Q4

REPORT INFORMATION
  Report Type: Spontaneous
  Country: IT (occurrence: IT)
  Receive Date: 20131021
  Receipt Date: 20131021
  Transmission Date: 20140711
  Serious: Yes (Other)
  Sender: FDA-Public Use
  Company Number: IT-TEVA-437736ISR

PATIENT
  Age: 10 Year
  Sex: Male

DRUGS (1)
  1. KETOPROFENE SALE DI LISINA [Suspect]
     Dosage: 2 DOSAGE FORMS DAILY;
     Route: 048
     Dates: start: 20070201, end: 20070201

REACTIONS (3)
  - Hyperbilirubinaemia [Recovering/Resolving]
  - Ocular icterus [Recovering/Resolving]
  - Jaundice [Recovering/Resolving]
